FAERS Safety Report 5299990-7 (Version None)
Quarter: 2007Q2

REPORT INFORMATION
  Report Type: 
  Country: None (occurrence: None)
  Receive Date: 20070417
  Receipt Date: 20070405
  Transmission Date: 20071010
  Serious: Yes (Hospitalization, Other)
  Sender: FDA-Public Use
  Company Number: US-PFIZER INC-2007013431

PATIENT
  Sex: Male

DRUGS (6)
  1. CELEBREX [Suspect]
     Indication: CARDIOMYOPATHY
     Route: 048
  2. CELEBREX [Suspect]
     Indication: CARDIAC FAILURE CONGESTIVE
  3. CELEBREX [Suspect]
     Indication: RENAL FAILURE
  4. METFORMIN HCL [Concomitant]
  5. VALSARTAN [Concomitant]
  6. SITAGLIPTIN [Concomitant]

REACTIONS (4)
  - CARDIAC FAILURE CONGESTIVE [None]
  - CARDIOMYOPATHY [None]
  - RENAL FAILURE [None]
  - RENAL TUBULAR ACIDOSIS [None]
